FAERS Safety Report 25599345 (Version 1)
Quarter: 2025Q3

REPORT INFORMATION
  Report Type: Spontaneous
  Country: EU (occurrence: EU)
  Receive Date: 20250724
  Receipt Date: 20250724
  Transmission Date: 20251020
  Serious: Yes (Other)
  Sender: TEVA
  Company Number: None

PATIENT
  Age: 40 Year
  Sex: Male
  Weight: 135 kg

DRUGS (1)
  1. METHYLPHENIDATE [Suspect]
     Active Substance: METHYLPHENIDATE
     Indication: Attention deficit hyperactivity disorder
     Dosage: AN ADDITIONAL 18 MG AS NECESSARY; METHYLPHENIDATE ACTAVIS
     Route: 048
     Dates: start: 20250512, end: 20250527

REACTIONS (3)
  - Angioedema [Recovered/Resolved]
  - Pruritus [Recovered/Resolved]
  - Sensation of foreign body [Recovered/Resolved]

NARRATIVE: CASE EVENT DATE: 20250512
